FAERS Safety Report 5303239-6 (Version None)
Quarter: 2007Q2

REPORT INFORMATION
  Report Type: 
  Country: None (occurrence: None)
  Receive Date: 20070420
  Receipt Date: 20070409
  Transmission Date: 20071010
  Serious: Yes (Hospitalization)
  Sender: FDA-Public Use
  Company Number: US-AMGEN-US212709

PATIENT
  Sex: Female
  Weight: 96.7 kg

DRUGS (8)
  1. ENBREL [Suspect]
     Indication: RHEUMATOID ARTHRITIS
     Dates: start: 20010101
  2. LOTREL [Concomitant]
     Route: 048
     Dates: start: 20050419
  3. FOLIC ACID [Concomitant]
     Route: 048
     Dates: start: 20050419
  4. CLARITIN [Concomitant]
     Route: 048
  5. GLUCOSAMINE [Concomitant]
     Dates: start: 20050419
  6. VITAMIN CAP [Concomitant]
     Dates: start: 20050915
  7. FISH OIL [Concomitant]
     Dates: start: 20060608
  8. VITAMIN D [Concomitant]
     Dates: start: 20050419

REACTIONS (3)
  - HERPES ZOSTER [None]
  - INFLUENZA [None]
  - RHEUMATOID ARTHRITIS [None]
